FAERS Safety Report 22081935 (Version 1)
Quarter: 2023Q1

REPORT INFORMATION
  Report Type: Other
  Country: IN (occurrence: None)
  Receive Date: 20230310
  Receipt Date: 20230310
  Transmission Date: 20230417
  Serious: Yes (Hospitalization)
  Sender: FDA-Public Use
  Company Number: IN-ROCHE-3301317

PATIENT
  Age: 41 Year
  Sex: Male

DRUGS (1)
  1. HEMLIBRA [Suspect]
     Active Substance: EMICIZUMAB-KXWH
     Indication: Factor VIII deficiency
     Dosage: HEMLIBRA DOSE WAS INCREASED 90MG TO 210MG PER WEEK AS PER DOCTOR ADVICE
     Route: 058

REACTIONS (1)
  - Haemorrhage [Unknown]
